FAERS Safety Report 5814757-6 (Version None)
Quarter: 2008Q3

REPORT INFORMATION
  Report Type: 
  Country: None (occurrence: None)
  Receive Date: 20080715
  Receipt Date: 20080704
  Transmission Date: 20090109
  Serious: Yes (Death, Life-Threatening)
  Sender: FDA-Public Use
  Company Number: 2006AP000804

PATIENT
  Age: 75 Year
  Sex: Female

DRUGS (10)
  1. PAROXETINE HCL [Suspect]
     Indication: DEPRESSION
     Dosage: 20 MG; QD PO, 20 MG; PO; QD
     Route: 048
     Dates: start: 20060622, end: 20060823
  2. PAROXETINE HCL [Suspect]
     Indication: DEPRESSION
     Dosage: 20 MG; QD PO, 20 MG; PO; QD
     Route: 048
     Dates: start: 20060622, end: 20060823
  3. FUROSEMIDE [Concomitant]
  4. QUININE (QUININE) [Concomitant]
  5. FLUTICASONE PROPIONATE [Concomitant]
  6. SALMETEROL XINAFOATE (SALMETEROL XINAFOATE) [Concomitant]
  7. TIOTROPIUM BROMIDE ^SPIRIVA^ (TIOTROPIUM BROMIDE) [Concomitant]
  8. TRAMADOL HCL [Concomitant]
  9. SALBUTAMOL (SALBUTAMOL) [Concomitant]
  10. SALBUTAMOL SULFATE (SALBUTAMOL SULFATE) [Concomitant]

REACTIONS (3)
  - COMA [None]
  - HEPATIC FAILURE [None]
  - PROTHROMBIN TIME PROLONGED [None]
